FAERS Safety Report 9218135 (Version 5)
Quarter: 2014Q1

REPORT INFORMATION
  Report Type: Spontaneous
  Country: US (occurrence: US)
  Receive Date: 20130408
  Receipt Date: 20140122
  Transmission Date: 20141002
  Serious: Yes (Other)
  Sender: FDA-Public Use
  Company Number: US-UCBSA-082394

PATIENT
  Age: 26 Year
  Sex: Male
  Weight: 79.37 kg

DRUGS (3)
  1. CIMZIA [Suspect]
     Indication: CROHN^S DISEASE
     Dosage: LOT NUMBER: 84887 EXPIRY DATE: ??/AUG/2015.
     Dates: start: 20121214, end: 2013
  2. CIMZIA [Suspect]
     Indication: CROHN^S DISEASE
     Route: 058
     Dates: start: 201305, end: 2013
  3. CIMZIA [Suspect]
     Indication: CROHN^S DISEASE
     Dates: start: 20131021

REACTIONS (5)
  - Intestinal cyst [Recovering/Resolving]
  - Crohn^s disease [Not Recovered/Not Resolved]
  - Nasopharyngitis [Recovered/Resolved]
  - Pyrexia [Recovered/Resolved]
  - Inappropriate schedule of drug administration [Not Recovered/Not Resolved]
